FAERS Safety Report 20503822 (Version 1)
Quarter: 2022Q1

REPORT INFORMATION
  Report Type: Spontaneous
  Country: US (occurrence: US)
  Receive Date: 20220222
  Receipt Date: 20220222
  Transmission Date: 20220423
  Serious: Yes (Death, Hospitalization, Other)
  Sender: FDA-Public Use
  Company Number: US-PFIZER INC-202200257852

PATIENT
  Age: 47 Year
  Sex: Male

DRUGS (8)
  1. FENTANYL CITRATE [Suspect]
     Active Substance: FENTANYL CITRATE
     Dosage: (INGESTION)
     Route: 048
  2. FENTANYL CITRATE [Suspect]
     Active Substance: FENTANYL CITRATE
     Dosage: UNK
     Route: 051
  3. PROPOFOL [Suspect]
     Active Substance: PROPOFOL
     Dosage: (INGESTION)
     Route: 048
  4. PROPOFOL [Suspect]
     Active Substance: PROPOFOL
     Dosage: UNK
     Route: 051
  5. METHAMPHETAMINE [Suspect]
     Active Substance: METHAMPHETAMINE
     Dosage: (INGESTION)
     Route: 048
  6. METHAMPHETAMINE [Suspect]
     Active Substance: METHAMPHETAMINE
     Dosage: UNK
     Route: 051
  7. HEROIN [Suspect]
     Active Substance: DIAMORPHINE
     Dosage: (INGESTION)
     Route: 048
  8. HEROIN [Suspect]
     Active Substance: DIAMORPHINE
     Dosage: UNK
     Route: 051

REACTIONS (2)
  - Intentional product misuse [Fatal]
  - Death [Fatal]

NARRATIVE: CASE EVENT DATE: 20200101
